FAERS Safety Report 16417427 (Version 1)
Quarter: 2019Q2

REPORT INFORMATION
  Report Type: Spontaneous
  Country: GB (occurrence: GB)
  Receive Date: 20190611
  Receipt Date: 20190611
  Transmission Date: 20190711
  Serious: Yes (Death, Other)
  Sender: FDA-Public Use
  Company Number: GB-PFIZER INC-2019248463

PATIENT
  Age: 76 Year
  Sex: Male

DRUGS (2)
  1. APIXABAN [Suspect]
     Active Substance: APIXABAN
     Dosage: ONLY HAD ONE DOSE AT 6PM.
     Dates: start: 20180801
  2. DALTEPARIN SODIUM [Suspect]
     Active Substance: DALTEPARIN SODIUM
     Dosage: AT 6PM
     Dates: start: 20180801

REACTIONS (6)
  - Sepsis [Not Recovered/Not Resolved]
  - Haemorrhage intracranial [Fatal]
  - Seizure [Not Recovered/Not Resolved]
  - Endocarditis [Not Recovered/Not Resolved]
  - Contraindicated product prescribed [Unknown]
  - Unresponsive to stimuli [Not Recovered/Not Resolved]

NARRATIVE: CASE EVENT DATE: 20180802
